FAERS Safety Report 24526942 (Version 1)
Quarter: 2024Q4

REPORT INFORMATION
  Report Type: Spontaneous
  Country: BG (occurrence: BG)
  Receive Date: 20241021
  Receipt Date: 20241021
  Transmission Date: 20250115
  Serious: Yes (Other)
  Sender: ASTELLAS
  Company Number: BG-ASTELLAS-2024-AER-013016

PATIENT
  Age: 70 Year
  Sex: Male

DRUGS (3)
  1. XTANDI [Suspect]
     Active Substance: ENZALUTAMIDE
     Indication: Prostate cancer
     Dosage: 40 MG 4 TABLETS P.O.Q28D
     Route: 048
  2. LUTRATE DEPOT [Concomitant]
     Active Substance: LEUPROLIDE ACETATE
     Indication: Prostate cancer
     Dosage: 22.5 MG IMPL. Q90D
     Route: 065
  3. XGEVA [Concomitant]
     Active Substance: DENOSUMAB
     Indication: Prostate cancer
     Dosage: 120 MG S.C.Q28D
     Route: 058

REACTIONS (2)
  - Malignant neoplasm progression [Unknown]
  - Off label use [Unknown]

NARRATIVE: CASE EVENT DATE: 20230822
